FAERS Safety Report 25976390 (Version 1)
Quarter: 2025Q4

REPORT INFORMATION
  Report Type: Other
  Country: US (occurrence: US)
  Receive Date: 20251029
  Receipt Date: 20251029
  Transmission Date: 20260117
  Serious: No
  Sender: TRAVERE THERAPEUTICS
  Company Number: US-TRAVERE-2025TVT01858

PATIENT
  Age: 61 Year
  Sex: Male

DRUGS (10)
  1. FILSPARI [Suspect]
     Active Substance: SPARSENTAN
     Indication: IgA nephropathy
     Route: 048
     Dates: start: 20250503
  2. LOSARTAN [Concomitant]
     Active Substance: LOSARTAN
  3. TAMSULOSIN [Concomitant]
     Active Substance: TAMSULOSIN
  4. ATORVASTATIN [Concomitant]
     Active Substance: ATORVASTATIN
  5. FARXIGA [Concomitant]
     Active Substance: DAPAGLIFLOZIN PROPANEDIOL
  6. GABAPENTIN [Concomitant]
     Active Substance: GABAPENTIN
  7. ARGININE [Concomitant]
     Active Substance: ARGININE
  8. VASCEPA [Concomitant]
     Active Substance: ICOSAPENT ETHYL
  9. RESPA [Concomitant]
     Active Substance: BELLADONNA LEAF\CHLORPHENIRAMINE MALEATE\PSEUDOEPHEDRINE HYDROCHLORIDE
  10. METFORMIN [Concomitant]
     Active Substance: METFORMIN HYDROCHLORIDE

REACTIONS (2)
  - Drug effect less than expected [Unknown]
  - Contraindicated product administered [Unknown]
